FAERS Safety Report 9962775 (Version 2)
Quarter: 2014Q1

REPORT INFORMATION
  Report Type: Report from Study
  Country: US (occurrence: US)
  Receive Date: 20140305
  Receipt Date: 20140305
  Transmission Date: 20141002
  Serious: No
  Sender: FDA-Public Use
  Company Number: US-ABBVIE-13P-163-1059670-00

PATIENT
  Age: 50 Year
  Sex: Male
  Weight: 91.71 kg

DRUGS (4)
  1. HUMIRA [Suspect]
     Indication: PSORIASIS
     Dates: start: 20121227, end: 20130227
  2. HUMIRA [Suspect]
     Dates: end: 201307
  3. AMLODIPINE [Suspect]
     Indication: HYPERTENSION
     Dates: start: 201304
  4. DILANTIN [Concomitant]
     Indication: EPILEPSY
     Dosage: ROTATES 4 OR 5 TABS EVERY OTHER DAY

REACTIONS (7)
  - Pruritus [Unknown]
  - Paraesthesia [Not Recovered/Not Resolved]
  - Drug ineffective [Not Recovered/Not Resolved]
  - Dermatitis contact [Unknown]
  - Hypertension [Unknown]
  - Dermatitis allergic [Unknown]
  - Adverse drug reaction [Unknown]
